FAERS Safety Report 9825484 (Version 1)
Quarter: 2014Q1

REPORT INFORMATION
  Report Type: Spontaneous
  Country: US (occurrence: None)
  Receive Date: 20140115
  Receipt Date: 20140115
  Transmission Date: 20141002
  Serious: No
  Sender: FDA-Public Use
  Company Number: None

PATIENT
  Age: 70 Year
  Sex: Female

DRUGS (4)
  1. AFINITOR [Suspect]
     Indication: NEOPLASM MALIGNANT
     Route: 048
     Dates: start: 20130129, end: 20130709
  2. AROMASIN [Concomitant]
  3. LOSARTAN HCT [Concomitant]
  4. MULTIVITAMIN [Concomitant]

REACTIONS (1)
  - Disease progression [None]
